FAERS Safety Report 10207697 (Version 1)
Quarter: 2014Q2

REPORT INFORMATION
  Report Type: Spontaneous
  Country: US (occurrence: US)
  Receive Date: 20140530
  Receipt Date: 20140530
  Transmission Date: 20141212
  Serious: No
  Sender: FDA-Public Use
  Company Number: US-GLAXOSMITHKLINE-A1055575A

PATIENT
  Age: 59 Year
  Sex: Female

DRUGS (1)
  1. VENTOLIN [Suspect]
     Indication: ASTHMA
     Dosage: 2PUFF SINGLE DOSE
     Route: 055
     Dates: start: 20140105

REACTIONS (4)
  - Allergic sinusitis [Recovering/Resolving]
  - Nasal discomfort [Recovering/Resolving]
  - Glossodynia [Recovering/Resolving]
  - Migraine [Recovering/Resolving]
